FAERS Safety Report 13252170 (Version 3)
Quarter: 2017Q2

REPORT INFORMATION
  Report Type: Spontaneous
  Country: US (occurrence: US)
  Receive Date: 20170220
  Receipt Date: 20170428
  Transmission Date: 20170830
  Serious: Yes (Other)
  Sender: FDA-Public Use
  Company Number: US-GLAXOSMITHKLINE-US2017023227

PATIENT
  Sex: Female
  Weight: 79.82 kg

DRUGS (1)
  1. BREO ELLIPTA [Suspect]
     Active Substance: FLUTICASONE FUROATE\VILANTEROL TRIFENATATE
     Indication: PRODUCT USED FOR UNKNOWN INDICATION
     Dosage: 1 PUFF(S), UNK
     Route: 048
     Dates: start: 20170127, end: 20170204

REACTIONS (12)
  - Oral fungal infection [Unknown]
  - Chapped lips [Unknown]
  - Glossodynia [Unknown]
  - Oropharyngeal pain [Unknown]
  - Stomatitis [Unknown]
  - Fungal oesophagitis [Unknown]
  - Lip swelling [Unknown]
  - Oral pain [Unknown]
  - Medication error [Unknown]
  - Dysphonia [Unknown]
  - Tongue discomfort [Unknown]
  - Oesophageal pain [Unknown]
